FAERS Safety Report 19484000 (Version 1)
Quarter: 2021Q3

REPORT INFORMATION
  Report Type: Spontaneous
  Country: GB (occurrence: GB)
  Receive Date: 20210701
  Receipt Date: 20210701
  Transmission Date: 20211014
  Serious: Yes (Other)
  Sender: FDA-Public Use
  Company Number: GB-MYLANLABS-2021M1038267

PATIENT
  Age: 31 Year
  Sex: Male
  Weight: 90 kg

DRUGS (1)
  1. CITALOPRAM [Suspect]
     Active Substance: CITALOPRAM HYDROBROMIDE
     Indication: ANXIETY
     Dosage: 20 MILLIGRAM
     Dates: start: 20190601

REACTIONS (6)
  - Restlessness [Recovered/Resolved]
  - Hypervigilance [Not Recovered/Not Resolved]
  - Libido decreased [Not Recovered/Not Resolved]
  - Insomnia [Recovered/Resolved]
  - Erectile dysfunction [Not Recovered/Not Resolved]
  - Orgasm abnormal [Not Recovered/Not Resolved]

NARRATIVE: CASE EVENT DATE: 20190601
